FAERS Safety Report 14205403 (Version 1)
Quarter: 2017Q4

REPORT INFORMATION
  Report Type: Spontaneous
  Country: US (occurrence: US)
  Receive Date: 20171120
  Receipt Date: 20171120
  Transmission Date: 20180321
  Serious: No
  Sender: FDA-Public Use
  Company Number: US-SHIRE-US201720560

PATIENT

DRUGS (1)
  1. XIIDRA [Suspect]
     Active Substance: LIFITEGRAST
     Indication: SJOGREN^S SYNDROME
     Dosage: ONE DROP IN EACH EYE TWICE A DAY ABOUT 12 HOURS APART
     Route: 047
     Dates: start: 20170602

REACTIONS (6)
  - Dysgeusia [Unknown]
  - Eye discharge [Unknown]
  - Incorrect dose administered [Unknown]
  - Vision blurred [Unknown]
  - Abdominal pain [Unknown]
  - Instillation site reaction [Unknown]
